FAERS Safety Report 16881036 (Version 1)
Quarter: 2019Q4

REPORT INFORMATION
  Report Type: Spontaneous
  Country: US (occurrence: US)
  Receive Date: 20190807
  Receipt Date: 20190807
  Transmission Date: 20200122
  Serious: Yes (Life-Threatening)
  Sender: FDA-Public Use
  Company Number: None

PATIENT
  Age: 41 Year
  Sex: Female
  Weight: 52.16 kg

DRUGS (2)
  1. FIRAZYR [Suspect]
     Active Substance: ICATIBANT ACETATE
     Indication: HEREDITARY ANGIOEDEMA
     Dosage: ?          OTHER DOSE:30MG/3ML;?
     Route: 058
     Dates: start: 20140808
  2. FIRAZYR [Suspect]
     Active Substance: ICATIBANT ACETATE

REACTIONS (1)
  - Product substitution issue [None]
